FAERS Safety Report 9244496 (Version 2)
Quarter: 2013Q2

REPORT INFORMATION
  Report Type: Report from Study
  Country: BR (occurrence: BR)
  Receive Date: 20130422
  Receipt Date: 20130613
  Transmission Date: 20140414
  Serious: Yes (Other)
  Sender: FDA-Public Use
  Company Number: PHHY2013BR038215

PATIENT
  Sex: Female
  Weight: 70 kg

DRUGS (5)
  1. ACLASTA [Suspect]
     Indication: OSTEOPENIA
     Dosage: 5 MG, UNK
     Route: 042
     Dates: start: 2009
  2. OMEPRAZOLE [Concomitant]
     Dosage: UNK UKN, UNK
  3. EUTHYROX [Concomitant]
     Dosage: UNK UKN, UNK
  4. OSCAL D [Concomitant]
     Dosage: UNK UKN, UNK
  5. PROTOS (PROTOPORPHYRIN DISODIUM) [Concomitant]
     Dosage: UNK UKN, UNK

REACTIONS (3)
  - Foot fracture [Recovered/Resolved]
  - Femur fracture [Unknown]
  - Fall [Unknown]
